FAERS Safety Report 9373256 (Version 1)
Quarter: 2013Q2

REPORT INFORMATION
  Report Type: Spontaneous
  Country: TR (occurrence: TR)
  Receive Date: 20130627
  Receipt Date: 20130627
  Transmission Date: 20140414
  Serious: Yes (Other)
  Sender: FDA-Public Use
  Company Number: TR-ELI_LILLY_AND_COMPANY-TR201306006577

PATIENT
  Sex: Female

DRUGS (4)
  1. PROZAC [Suspect]
     Dosage: 20 MG, UNKNOWN
     Route: 048
     Dates: start: 2010, end: 2010
  2. PROZAC [Suspect]
     Dosage: 20 MG, UNKNOWN
     Route: 065
     Dates: start: 201201, end: 201205
  3. PROZAC [Suspect]
     Dosage: 1 DF, UNKNOWN
     Route: 065
     Dates: start: 20130610
  4. EUTHYROX [Concomitant]
     Dosage: 1 DF, QD
     Route: 065

REACTIONS (5)
  - Blood immunoglobulin E increased [Recovered/Resolved]
  - Weight increased [Recovered/Resolved]
  - Increased appetite [Unknown]
  - Somnolence [Recovered/Resolved]
  - Somnolence [Unknown]
